FAERS Safety Report 5356617-3 (Version None)
Quarter: 2007Q2

REPORT INFORMATION
  Report Type: 
  Country: None (occurrence: None)
  Receive Date: 20070614
  Receipt Date: 20070608
  Transmission Date: 20071010
  Serious: Yes (Life-Threatening, Hospitalization, Other)
  Sender: FDA-Public Use
  Company Number: PHBS2007CA09690

PATIENT
  Age: 45 Year
  Sex: Male

DRUGS (2)
  1. BACLOFEN [Suspect]
     Dosage: 20 TABLETS OF 10MG AT ONCE
     Route: 048
  2. MIRTAZAPINE [Suspect]
     Dosage: 15 TABLETS OF 15MG AT ONCE
     Route: 048

REACTIONS (11)
  - AGITATION [None]
  - BLOOD BILIRUBIN INCREASED [None]
  - BLOOD CREATINE PHOSPHOKINASE INCREASED [None]
  - INTENTIONAL OVERDOSE [None]
  - INTUBATION [None]
  - OCULOCEPHALOGYRIC REFLEX ABSENT [None]
  - PLATELET COUNT DECREASED [None]
  - SUICIDE ATTEMPT [None]
  - UNRESPONSIVE TO STIMULI [None]
  - VESTIBULAR FUNCTION TEST ABNORMAL [None]
  - WHITE BLOOD CELL COUNT INCREASED [None]
